FAERS Safety Report 15666105 (Version 1)
Quarter: 2018Q4

REPORT INFORMATION
  Report Type: Spontaneous
  Country: PK (occurrence: PK)
  Receive Date: 20181128
  Receipt Date: 20181128
  Transmission Date: 20190205
  Serious: Yes (Hospitalization)
  Sender: FDA-Public Use
  Company Number: PK-MYLANLABS-2018M1087847

PATIENT
  Age: 4 Year
  Sex: Female
  Weight: 10.7 kg

DRUGS (4)
  1. ETOPOSIDE. [Suspect]
     Active Substance: ETOPOSIDE
     Indication: NEPHROBLASTOMA
     Dosage: RECEIVED ONE CYCLE
     Route: 065
     Dates: start: 2016
  2. RISPERIDONE. [Suspect]
     Active Substance: RISPERIDONE
     Indication: DECREASED APPETITE
     Route: 048
     Dates: start: 20161019
  3. IFOSFAMIDE. [Suspect]
     Active Substance: IFOSFAMIDE
     Indication: NEPHROBLASTOMA
     Dosage: RECEIVED ONE CYCLE
     Route: 065
     Dates: start: 2016
  4. CARBOPLATIN. [Suspect]
     Active Substance: CARBOPLATIN
     Indication: NEPHROBLASTOMA
     Dosage: RECEIVED ONE CYCLE
     Route: 065
     Dates: start: 2016

REACTIONS (6)
  - Febrile neutropenia [Unknown]
  - Extrapyramidal disorder [Recovered/Resolved]
  - Off label use [Recovered/Resolved]
  - Mucosal inflammation [Unknown]
  - Weight decreased [Unknown]
  - Decreased appetite [Unknown]

NARRATIVE: CASE EVENT DATE: 2016
